FAERS Safety Report 15441306 (Version 1)
Quarter: 2018Q4

REPORT INFORMATION
  Report Type: Spontaneous
  Country: US (occurrence: US)
  Receive Date: 20180928
  Receipt Date: 20180928
  Transmission Date: 20190204
  Serious: No
  Sender: FDA-Public Use
  Company Number: US-JUBILANT CADISTA PHARMACEUTICALS-2018JUB00072

PATIENT
  Sex: Female
  Weight: 74.83 kg

DRUGS (5)
  1. REMUDOLIN SQ [Suspect]
     Active Substance: TREPROSTINIL SODIUM
     Indication: PULMONARY ARTERIAL HYPERTENSION
     Dosage: 0.04 ?G/KG/MIN, CONTINUOUS
     Route: 058
     Dates: start: 20150930
  2. PREDNISONE. [Suspect]
     Active Substance: PREDNISONE
     Dosage: UNK
  3. COUMADIN [Concomitant]
     Active Substance: WARFARIN SODIUM
  4. ADCIRCA [Concomitant]
     Active Substance: TADALAFIL
  5. LETAIRIS [Suspect]
     Active Substance: AMBRISENTAN
     Indication: PULMONARY ARTERIAL HYPERTENSION
     Dosage: 5 MG, 1X/DAY
     Dates: start: 20151009

REACTIONS (2)
  - Platelet count decreased [Recovered/Resolved]
  - Abdominal distension [Not Recovered/Not Resolved]
